FAERS Safety Report 6346170-X (Version None)
Quarter: 2009Q3

REPORT INFORMATION
  Report Type: 
  Country: None (occurrence: None)
  Receive Date: 20090909
  Receipt Date: 20090902
  Transmission Date: 20100115
  Serious: Yes (Hospitalization, Congenital Anomaly)
  Sender: FDA-Public Use
  Company Number: US-TEVA-206491USA

PATIENT
  Sex: Female
  Weight: 0.469 kg

DRUGS (1)
  1. PLAN B [Suspect]
     Route: 064
     Dates: start: 20081107, end: 20081108

REACTIONS (4)
  - DRUG EXPOSURE DURING PREGNANCY [None]
  - HEART DISEASE CONGENITAL [None]
  - HYDROCEPHALUS [None]
  - PREMATURE BABY [None]
